FAERS Safety Report 13049624 (Version 1)
Quarter: 2016Q4

REPORT INFORMATION
  Report Type: Spontaneous
  Country: GB (occurrence: GB)
  Receive Date: 20161221
  Receipt Date: 20161221
  Transmission Date: 20170207
  Serious: Yes (Death, Other)
  Sender: FDA-Public Use
  Company Number: GB-DEXPHARM-20162441

PATIENT
  Age: 70 Year
  Sex: Male

DRUGS (2)
  1. HIBISCRUB [Suspect]
     Active Substance: CHLORHEXIDINE GLUCONATE
     Indication: INFECTION PROPHYLAXIS
     Route: 061
  2. HIBISCRUB [Suspect]
     Active Substance: CHLORHEXIDINE GLUCONATE
     Route: 048
     Dates: start: 20080225

REACTIONS (5)
  - Vomiting [Unknown]
  - Disinfectant poisoning [Unknown]
  - Accidental exposure to product [Unknown]
  - Choking [Unknown]
  - Pneumonia aspiration [Fatal]

NARRATIVE: CASE EVENT DATE: 20080225
